FAERS Safety Report 9684252 (Version 2)
Quarter: 2013Q4

REPORT INFORMATION
  Report Type: Report from Study
  Country: US (occurrence: US)
  Receive Date: 20131112
  Receipt Date: 20131118
  Transmission Date: 20140711
  Serious: Yes (Hospitalization)
  Sender: FDA-Public Use
  Company Number: US-VIIV HEALTHCARE LIMITED-B0941435A

PATIENT
  Age: 58 Year
  Sex: Male
  Weight: 73 kg

DRUGS (11)
  1. MARAVIROC [Suspect]
     Indication: PROPHYLAXIS AGAINST GRAFT VERSUS HOST DISEASE
     Dosage: 300MG TWICE PER DAY
     Route: 048
     Dates: start: 20130908
  2. FLUCONAZOLE [Concomitant]
     Dosage: 400MG PER DAY
     Route: 048
  3. MAGNESIUM OXIDE [Concomitant]
     Dosage: 400MG PER DAY
     Route: 048
  4. OMEPRAZOLE [Concomitant]
     Dosage: 20MG PER DAY
     Route: 048
  5. SIMVASTATIN [Concomitant]
     Dosage: 40MG PER DAY
     Route: 048
  6. BACTRIM [Concomitant]
     Route: 048
  7. TACROLIMUS [Concomitant]
     Dosage: 1MG TWICE PER DAY
     Route: 048
  8. ACICLOVIR [Concomitant]
     Dosage: 800MG TWICE PER DAY
  9. MAGNESIUM [Concomitant]
     Route: 042
  10. AVODART [Concomitant]
     Dosage: .5MG PER DAY
  11. LOVENOX [Concomitant]
     Route: 058

REACTIONS (4)
  - Pericardial effusion [Unknown]
  - Nausea [Unknown]
  - Decreased appetite [Unknown]
  - Atelectasis [Unknown]
